FAERS Safety Report 5909491-8 (Version None)
Quarter: 2008Q4

REPORT INFORMATION
  Report Type: 
  Country: None (occurrence: None)
  Receive Date: 20081006
  Receipt Date: 20081002
  Transmission Date: 20090506
  Serious: Yes (Hospitalization)
  Sender: FDA-Public Use
  Company Number: FR-WYE-G02242708

PATIENT
  Age: 40 Year
  Sex: Male

DRUGS (2)
  1. TORISEL [Suspect]
     Dosage: UNKNOWN
     Route: 042
     Dates: start: 20080101, end: 20080901
  2. TORISEL [Suspect]
     Dosage: UNKNOWN
     Route: 042
     Dates: start: 20080901

REACTIONS (6)
  - ANXIETY [None]
  - CONFUSIONAL STATE [None]
  - DYSPNOEA [None]
  - HYPONATRAEMIA [None]
  - MALAISE [None]
  - STOMATITIS [None]
